FAERS Safety Report 6917635-4 (Version None)
Quarter: 2010Q3

REPORT INFORMATION
  Report Type: 
  Country: None (occurrence: None)
  Receive Date: 20100810
  Receipt Date: 20100806
  Transmission Date: 20110219
  Serious: Yes (Hospitalization)
  Sender: FDA-Public Use
  Company Number: GB-TEVA-243825ISR

PATIENT
  Age: 60 Year
  Sex: Female
  Weight: 89 kg

DRUGS (4)
  1. PREDNISOLONE [Suspect]
  2. LANSOPRAZOLE [Suspect]
  3. HEPATITIS A VACCINE [Suspect]
     Indication: PROPHYLAXIS
     Dosage: 1440DF
     Dates: start: 20090121, end: 20090121
  4. REVAXIS [Suspect]
     Indication: PROPHYLAXIS
     Dates: start: 20090121, end: 20090121

REACTIONS (26)
  - ABDOMINAL PAIN [None]
  - ALANINE AMINOTRANSFERASE INCREASED [None]
  - ASTHENIA [None]
  - AUTOIMMUNE HEPATITIS [None]
  - BACK PAIN [None]
  - BLOOD BILIRUBIN INCREASED [None]
  - BLOOD PRESSURE INCREASED [None]
  - CARBOHYDRATE ANTIGEN 19-9 INCREASED [None]
  - CHROMATURIA [None]
  - DECREASED APPETITE [None]
  - EATING DISORDER [None]
  - ERYTHEMA MULTIFORME [None]
  - HEPATIC FUNCTION ABNORMAL [None]
  - HEPATITIS A [None]
  - IMMUNE SYSTEM DISORDER [None]
  - IMPAIRED WORK ABILITY [None]
  - INFECTIOUS MONONUCLEOSIS [None]
  - JAUNDICE [None]
  - LIVER FUNCTION TEST ABNORMAL [None]
  - MALAISE [None]
  - NAUSEA [None]
  - PERIPHERAL COLDNESS [None]
  - PRURITUS [None]
  - SKIN BURNING SENSATION [None]
  - SKIN REACTION [None]
  - WEIGHT INCREASED [None]
